FAERS Safety Report 4741647-2 (Version None)
Quarter: 2005Q3

REPORT INFORMATION
  Report Type: 
  Country: None (occurrence: None)
  Receive Date: 20050801
  Receipt Date: 20050627
  Transmission Date: 20060218
  Serious: No
  Sender: FDA-Public Use
  Company Number: 2005PV000148

PATIENT
  Age: 43 Year
  Sex: Female
  Weight: 107.5025 kg

DRUGS (11)
  1. BYETTA [Suspect]
     Indication: DIABETES MELLITUS NON-INSULIN-DEPENDENT
     Dosage: 5 UG; BID; SC
     Route: 058
     Dates: start: 20050618
  2. GLUCOPHAGE [Concomitant]
  3. AVANDIA [Concomitant]
  4. AMARYL [Concomitant]
  5. SYNTHROID [Concomitant]
  6. CALAN - SLOW RELEASE [Concomitant]
  7. ZOLOFT [Concomitant]
  8. AZMACORT [Concomitant]
  9. COMBIVENT [Concomitant]
  10. NEXIUM [Concomitant]
  11. DRAMAMINE [Concomitant]

REACTIONS (5)
  - BLOOD GLUCOSE DECREASED [None]
  - DECREASED APPETITE [None]
  - DYSPEPSIA [None]
  - GASTROOESOPHAGEAL REFLUX DISEASE [None]
  - NAUSEA [None]
